FAERS Safety Report 11098336 (Version 2)
Quarter: 2015Q2

REPORT INFORMATION
  Report Type: Spontaneous
  Country: US (occurrence: US)
  Receive Date: 20150507
  Receipt Date: 20150512
  Transmission Date: 20150821
  Serious: Yes (Other)
  Sender: FDA-Public Use
  Company Number: US-RB-076787-15

PATIENT
  Age: 87 Year
  Sex: Female

DRUGS (1)
  1. MUCINEX [Suspect]
     Active Substance: GUAIFENESIN
     Indication: BRONCHITIS
     Dosage: PATIENT USED THE DRUG FOR 7 DAYS AND CONSUMED 1 CONTAINER
     Route: 065
     Dates: start: 20150417

REACTIONS (4)
  - Dyspnoea [Unknown]
  - Product use issue [Unknown]
  - Anxiety [Unknown]
  - Chest pain [Unknown]

NARRATIVE: CASE EVENT DATE: 201504
